FAERS Safety Report 10570371 (Version 2)
Quarter: 2015Q1

REPORT INFORMATION
  Report Type: Spontaneous
  Country: CH (occurrence: None)
  Receive Date: 20141105
  Receipt Date: 20150106
  Transmission Date: 20150720
  Serious: Yes (Death, Other)
  Sender: FDA-Public Use
  Company Number: 20140629

PATIENT
  Weight: 2.75 kg

DRUGS (3)
  1. GYNODAKTARIN (MICONOZOLE NITRATE) [Concomitant]
  2. FERINJECT [Suspect]
     Active Substance: FERRIC CARBOXYMALTOSE
     Indication: HAEMOGLOBIN DECREASED
     Route: 064
     Dates: start: 20140727
  3. UTROGESTAN (PROGESTERONE) [Concomitant]

REACTIONS (5)
  - Maternal drugs affecting foetus [None]
  - Shock [None]
  - Venous thrombosis [None]
  - Foetal death [None]
  - Hepatomegaly [None]

NARRATIVE: CASE EVENT DATE: 20140727
